FAERS Safety Report 4626918-2 (Version None)
Quarter: 2005Q2

REPORT INFORMATION
  Report Type: 
  Country: None (occurrence: None)
  Receive Date: 20050405
  Receipt Date: 20050118
  Transmission Date: 20051028
  Serious: Yes (Hospitalization)
  Sender: FDA-Public Use
  Company Number: US-MERCK-0501USA02716

PATIENT
  Age: 52 Year
  Sex: Male

DRUGS (1)
  1. VIOXX [Suspect]
     Route: 048

REACTIONS (30)
  - ABDOMINAL PAIN UPPER [None]
  - ABSCESS LIMB [None]
  - ALOPECIA [None]
  - ANGINA PECTORIS [None]
  - ARTHRITIS BACTERIAL [None]
  - BENIGN PROSTATIC HYPERPLASIA [None]
  - CARDIAC MURMUR [None]
  - CHRONIC OBSTRUCTIVE PULMONARY DISEASE [None]
  - DIABETES MELLITUS [None]
  - DIABETIC FOOT [None]
  - DIABETIC NEUROPATHY [None]
  - DIARRHOEA [None]
  - DIASTOLIC DYSFUNCTION [None]
  - DRY THROAT [None]
  - ELECTROCARDIOGRAM ST-T CHANGE [None]
  - ERECTILE DYSFUNCTION [None]
  - EXOSTOSIS [None]
  - FATIGUE [None]
  - HYPERTENSION [None]
  - MICROALBUMINURIA [None]
  - NECROTISING FASCIITIS [None]
  - OEDEMA PERIPHERAL [None]
  - OSTEOMYELITIS [None]
  - OSTEOPENIA [None]
  - PHIMOSIS [None]
  - TESTICULAR ATROPHY [None]
  - TRICUSPID VALVE INCOMPETENCE [None]
  - VENTRICULAR EXTRASYSTOLES [None]
  - VENTRICULAR HYPERTROPHY [None]
  - VISUAL DISTURBANCE [None]
